FAERS Safety Report 5929118-9 (Version None)
Quarter: 2008Q4

REPORT INFORMATION
  Report Type: 
  Country: None (occurrence: None)
  Receive Date: 20081024
  Receipt Date: 20081017
  Transmission Date: 20090506
  Serious: Yes (Hospitalization)
  Sender: FDA-Public Use
  Company Number: JP-BAYER-200811406BYL

PATIENT
  Age: 69 Year
  Sex: Female
  Weight: 50 kg

DRUGS (6)
  1. NEXAVAR [Suspect]
     Indication: RENAL CELL CARCINOMA STAGE IV
     Dosage: TOTAL DAILY DOSE: 400 MG
     Route: 048
     Dates: start: 20080531, end: 20080619
  2. ZYRTEC [Concomitant]
     Indication: ONCOLOGIC COMPLICATION
     Route: 048
     Dates: start: 20080530
  3. MAGMITT [Concomitant]
     Indication: ONCOLOGIC COMPLICATION
     Route: 048
     Dates: start: 20080609
  4. PURSENNID [Concomitant]
     Indication: ONCOLOGIC COMPLICATION
     Route: 048
     Dates: start: 20080530, end: 20080608
  5. GASTER D [Concomitant]
     Dosage: AS USED: 20 MG
     Route: 048
     Dates: start: 20080627
  6. BONALON [Concomitant]
     Dosage: AS USED: 35 MG
     Route: 048
     Dates: start: 20080627

REACTIONS (3)
  - ERYTHEMA MULTIFORME [None]
  - HYPERTENSION [None]
  - INTERSTITIAL LUNG DISEASE [None]
